FAERS Safety Report 6040523-5 (Version None)
Quarter: 2009Q1

REPORT INFORMATION
  Report Type: 
  Country: None (occurrence: None)
  Receive Date: 20090116
  Receipt Date: 20080331
  Transmission Date: 20090719
  Serious: No
  Sender: FDA-Public Use
  Company Number: US-BRISTOL-MYERS SQUIBB COMPANY-14131684

PATIENT
  Sex: Female

DRUGS (1)
  1. ABILIFY [Suspect]

REACTIONS (2)
  - FOOD CRAVING [None]
  - INCREASED APPETITE [None]
